FAERS Safety Report 7299277-7 (Version None)
Quarter: 2011Q1

REPORT INFORMATION
  Report Type: 
  Country: None (occurrence: None)
  Receive Date: 20110217
  Receipt Date: 20110204
  Transmission Date: 20110831
  Serious: Yes (Other)
  Sender: FDA-Public Use
  Company Number: NL-ELI_LILLY_AND_COMPANY-NL201101003572

PATIENT
  Sex: Female

DRUGS (3)
  1. MERONEN [Concomitant]
     Dates: start: 20101227
  2. ARANESP [Concomitant]
     Dates: start: 20101224
  3. PEMETREXED [Suspect]
     Indication: NON-SMALL CELL LUNG CANCER
     Dosage: UNK, UNKNOWN
     Dates: start: 20101210

REACTIONS (2)
  - URTICARIA [None]
  - HYPERSENSITIVITY [None]
